FAERS Safety Report 6391353-6 (Version None)
Quarter: 2009Q4

REPORT INFORMATION
  Report Type: 
  Country: None (occurrence: None)
  Receive Date: 20091007
  Receipt Date: 20090930
  Transmission Date: 20100525
  Serious: Yes (Other)
  Sender: FDA-Public Use
  Company Number: US-JNJFOC-20091000631

PATIENT
  Age: 8 Year
  Sex: Female
  Weight: 27.22 kg

DRUGS (3)
  1. CHILDREN'S TYLENOL PLUS FLU BUBBLEGUM [Suspect]
     Indication: COUGH
     Route: 048
  2. TRILEPTAL [Concomitant]
     Indication: CONVULSION
  3. DIASTAT ACUDIAL [Concomitant]
     Indication: CONVULSION

REACTIONS (2)
  - CONVULSION [None]
  - TRANSMISSION OF AN INFECTIOUS AGENT VIA A MEDICINAL PRODUCT [None]
